FAERS Safety Report 13980504 (Version 2)
Quarter: 2017Q3

REPORT INFORMATION
  Report Type: Spontaneous
  Country: US (occurrence: US)
  Receive Date: 20170918
  Receipt Date: 20170926
  Transmission Date: 20171128
  Serious: Yes (Hospitalization, Other)
  Sender: FDA-Public Use
  Company Number: US-AUROBINDO-AUR-APL-2017-40306

PATIENT
  Age: 80 Year
  Sex: Male

DRUGS (1)
  1. PHENYTOIN. [Suspect]
     Active Substance: PHENYTOIN
     Indication: SEIZURE
     Route: 065

REACTIONS (4)
  - Respiratory failure [Unknown]
  - Haemoptysis [Recovered/Resolved]
  - Acquired haemophilia [Recovered/Resolved]
  - Pemphigoid [Recovering/Resolving]
